FAERS Safety Report 8478279-9 (Version None)
Quarter: 2012Q2

REPORT INFORMATION
  Report Type: 
  Country: None (occurrence: None)
  Receive Date: 20120629
  Receipt Date: 20120620
  Transmission Date: 20120825
  Serious: Yes (Hospitalization)
  Sender: FDA-Public Use
  Company Number: US-JNJFOC-20120605654

PATIENT
  Age: 69 Year
  Sex: Female
  Weight: 122 kg

DRUGS (13)
  1. SODIUM CHLORIDE [Concomitant]
     Dosage: IN DAY PRIOR (TO EVENT)
     Route: 040
  2. BISACODYL [Concomitant]
  3. MAGNESIUM HYDROXIDE TAB [Concomitant]
     Indication: PRODUCT USED FOR UNKNOWN INDICATION
  4. REGLAN [Concomitant]
  5. ZOFRAN [Concomitant]
  6. ACETAMINOPHEN [Concomitant]
  7. FERROUS SULFATE TAB [Concomitant]
  8. MORPHINE [Concomitant]
  9. LACTATED RINGER'S [Concomitant]
  10. COLACE [Concomitant]
  11. XARELTO [Suspect]
     Indication: PROPHYLAXIS
     Route: 048
     Dates: start: 20120302, end: 20120303
  12. MAGNESIUM SULFATE [Concomitant]
  13. OXYCODONE HCL [Concomitant]

REACTIONS (2)
  - THROMBOSIS [None]
  - VENOUS THROMBOSIS LIMB [None]
